FAERS Safety Report 25713501 (Version 2)
Quarter: 2025Q3

REPORT INFORMATION
  Report Type: Spontaneous
  Country: US (occurrence: US)
  Receive Date: 20250822
  Receipt Date: 20250829
  Transmission Date: 20251021
  Serious: No
  Sender: GLAXOSMITHKLINE
  Company Number: US-GSK-US2025AMR097887

PATIENT
  Sex: Female
  Weight: 69 kg

DRUGS (1)
  1. BENLYSTA [Suspect]
     Active Substance: BELIMUMAB
     Indication: Illness
     Dosage: 200 MG/ML, WE

REACTIONS (2)
  - Product dose omission issue [Unknown]
  - Product complaint [Unknown]
